FAERS Safety Report 19371308 (Version 1)
Quarter: 2021Q2

REPORT INFORMATION
  Report Type: Report from Study
  Country: KR (occurrence: KR)
  Receive Date: 20210604
  Receipt Date: 20210604
  Transmission Date: 20210717
  Serious: Yes (Other)
  Sender: FDA-Public Use
  Company Number: KR-AMGEN INC.-KORCT2021084241

PATIENT
  Age: 55 Year
  Sex: Female

DRUGS (4)
  1. FILGRASTIM [Suspect]
     Active Substance: FILGRASTIM
     Dosage: 450 UNK
     Route: 065
     Dates: start: 20120106, end: 20120106
  2. FILGRASTIM [Suspect]
     Active Substance: FILGRASTIM
     Indication: PRODUCT USED FOR UNKNOWN INDICATION
     Dosage: 450 UNK
     Route: 065
     Dates: start: 20111225, end: 20120101
  3. FILGRASTIM [Suspect]
     Active Substance: FILGRASTIM
     Dosage: 450 UNK
     Route: 065
     Dates: start: 20120104, end: 20120104
  4. FILGRASTIM [Suspect]
     Active Substance: FILGRASTIM
     Dosage: 450 UNK
     Route: 065
     Dates: start: 20120110, end: 20120110

REACTIONS (17)
  - Hypertension [Recovered/Resolved]
  - Decreased appetite [Recovered/Resolved]
  - Hypokalaemia [Recovered/Resolved]
  - Tinnitus [Recovered/Resolved]
  - Dyspnoea [Recovered/Resolved]
  - Pyrexia [Recovered/Resolved]
  - Asthenia [Recovered/Resolved]
  - Gingival hypertrophy [Recovered/Resolved]
  - Nausea [Recovered/Resolved]
  - Weight increased [Recovered/Resolved]
  - Neutropenia [Recovered/Resolved]
  - Anxiety [Recovered/Resolved]
  - Neck pain [Not Recovered/Not Resolved]
  - Dizziness [Recovered/Resolved]
  - Vision blurred [Recovered/Resolved]
  - Constipation [Recovered/Resolved]
  - Arthralgia [Recovered/Resolved]

NARRATIVE: CASE EVENT DATE: 20111225
